FAERS Safety Report 6768270-2 (Version None)
Quarter: 2010Q2

REPORT INFORMATION
  Report Type: 
  Country: None (occurrence: None)
  Receive Date: 20100610
  Receipt Date: 20100517
  Transmission Date: 20101027
  Serious: Yes (Other)
  Sender: FDA-Public Use
  Company Number: M1002610

PATIENT
  Age: 49 Year
  Sex: Female

DRUGS (1)
  1. SANDRENA (ESTRADIOL) [Suspect]
     Indication: HORMONE THERAPY
     Dosage: 1 MG, DAILY, TOPICAL
     Route: 061
     Dates: start: 20100501

REACTIONS (3)
  - BACK PAIN [None]
  - GENERALISED OEDEMA [None]
  - WEIGHT INCREASED [None]
